FAERS Safety Report 25410563 (Version 1)
Quarter: 2025Q2

REPORT INFORMATION
  Report Type: Spontaneous
  Country: CZ (occurrence: CZ)
  Receive Date: 20250608
  Receipt Date: 20250608
  Transmission Date: 20250717
  Serious: Yes (Other)
  Sender: JOHNSON AND JOHNSON
  Company Number: CZ-CHEPLA-2025006786

PATIENT
  Age: 29 Year
  Sex: Male
  Weight: 105 kg

DRUGS (19)
  1. RISPERDAL [Suspect]
     Active Substance: RISPERIDONE
     Indication: Hallucination, auditory
     Route: 065
     Dates: start: 2021
  2. RISPERDAL [Suspect]
     Active Substance: RISPERIDONE
  3. RISPERDAL [Suspect]
     Active Substance: RISPERIDONE
  4. RISPERDAL [Suspect]
     Active Substance: RISPERIDONE
  5. RISPERDAL [Suspect]
     Active Substance: RISPERIDONE
  6. RISPERDAL [Suspect]
     Active Substance: RISPERIDONE
  7. OLANZAPINE [Suspect]
     Active Substance: OLANZAPINE
     Indication: Hallucination, auditory
     Dates: start: 202112
  8. OLANZAPINE [Suspect]
     Active Substance: OLANZAPINE
     Dosage: REDUCED
     Dates: start: 202401
  9. OLANZAPINE [Suspect]
     Active Substance: OLANZAPINE
  10. OLANZAPINE [Suspect]
     Active Substance: OLANZAPINE
  11. ESCITALOPRAM [Suspect]
     Active Substance: ESCITALOPRAM OXALATE
     Indication: Hallucination, auditory
     Dosage: WAS GRADUALLY TITRATED TO A DOSE OF 20 MG/DAY
     Dates: start: 202112
  12. CARIPRAZINE [Suspect]
     Active Substance: CARIPRAZINE
     Indication: Hallucination, auditory
     Dates: start: 202307
  13. CARIPRAZINE [Suspect]
     Active Substance: CARIPRAZINE
     Dates: start: 202401
  14. CARIPRAZINE [Suspect]
     Active Substance: CARIPRAZINE
  15. PREGABALIN [Suspect]
     Active Substance: PREGABALIN
     Indication: Product used for unknown indication
  16. CANNABIS SATIVA SUBSP. INDICA TOP [Suspect]
     Active Substance: CANNABIS SATIVA SUBSP. INDICA TOP
     Indication: Drug abuse
     Dates: start: 2018
  17. CANNABIS SATIVA SUBSP. INDICA TOP [Suspect]
     Active Substance: CANNABIS SATIVA SUBSP. INDICA TOP
     Dates: start: 202112
  18. ALCOHOL [Suspect]
     Active Substance: ALCOHOL
     Indication: Hepatic enzyme increased
  19. ALCOHOL [Suspect]
     Active Substance: ALCOHOL
     Indication: Drug abuse

REACTIONS (6)
  - Mental impairment [Unknown]
  - Weight increased [Not Recovered/Not Resolved]
  - Cognitive disorder [Unknown]
  - Negative symptoms in schizophrenia [Unknown]
  - Insomnia [Unknown]
  - Derealisation [Unknown]

NARRATIVE: CASE EVENT DATE: 20231001
